FAERS Safety Report 6644787-6 (Version None)
Quarter: 2010Q1

REPORT INFORMATION
  Report Type: 
  Country: None (occurrence: None)
  Receive Date: 20100322
  Receipt Date: 20100310
  Transmission Date: 20100710
  Serious: Yes (Life-Threatening)
  Sender: FDA-Public Use
  Company Number: JP-PFIZER INC-2010019326

PATIENT
  Age: 55 Year
  Sex: Female
  Weight: 49 kg

DRUGS (5)
  1. FARMORUBICIN [Suspect]
     Indication: MALIGNANT BREAST LUMP REMOVAL
     Dosage: 145 MG, ONCE/3WEEKS
     Route: 042
     Dates: start: 20091123, end: 20100125
  2. ENDOXAN [Suspect]
     Indication: MALIGNANT BREAST LUMP REMOVAL
     Dosage: 900 MG ONCE/3WEEKS
     Route: 042
     Dates: start: 20091123, end: 20100125
  3. FAMOTIDINE [Concomitant]
     Dosage: UNK
     Route: 048
     Dates: start: 20091201
  4. POLAPREZINC [Concomitant]
     Dosage: UNK
     Route: 048
     Dates: start: 20091201
  5. MYSLEE [Concomitant]
     Dosage: UNK
     Route: 048
     Dates: start: 20091027

REACTIONS (1)
  - TOXIC EPIDERMAL NECROLYSIS [None]
